FAERS Safety Report 6888050-7 (Version None)
Quarter: 2010Q3

REPORT INFORMATION
  Report Type: 
  Country: None (occurrence: None)
  Receive Date: 20100726
  Receipt Date: 20100720
  Transmission Date: 20110219
  Serious: Yes (Death)
  Sender: FDA-Public Use
  Company Number: 2010SP040152

PATIENT
  Age: 72 Year
  Sex: Male
  Weight: 51.2 kg

DRUGS (13)
  1. TEMODAL [Suspect]
     Indication: GLIOBLASTOMA MULTIFORME
     Dosage: 75 MG/M2;QD;PO 150 MG/M2;QD/PO
     Route: 048
     Dates: start: 20061127, end: 20070118
  2. TEMODAL [Suspect]
     Indication: GLIOBLASTOMA MULTIFORME
     Dosage: 75 MG/M2;QD;PO 150 MG/M2;QD/PO
     Route: 048
     Dates: start: 20070222, end: 20070226
  3. TEMODAL [Suspect]
     Indication: GLIOBLASTOMA MULTIFORME
     Dosage: 75 MG/M2;QD;PO 150 MG/M2;QD/PO
     Route: 048
     Dates: start: 20070322, end: 20070326
  4. TEMODAL [Suspect]
     Indication: GLIOBLASTOMA MULTIFORME
     Dosage: 75 MG/M2;QD;PO 150 MG/M2;QD/PO
     Route: 048
     Dates: start: 20070423, end: 20070427
  5. TEMODAL [Suspect]
     Indication: GLIOBLASTOMA MULTIFORME
     Dosage: 75 MG/M2;QD;PO 150 MG/M2;QD/PO
     Route: 048
     Dates: start: 20070521, end: 20070525
  6. TEMODAL [Suspect]
     Indication: GLIOBLASTOMA MULTIFORME
     Dosage: 75 MG/M2;QD;PO 150 MG/M2;QD/PO
     Route: 048
     Dates: start: 20070618, end: 20070622
  7. TEMODAL [Suspect]
     Indication: GLIOBLASTOMA MULTIFORME
     Dosage: 75 MG/M2;QD;PO 150 MG/M2;QD/PO
     Route: 048
     Dates: start: 20070715, end: 20070719
  8. NITOROL R [Concomitant]
  9. RINDERON [Concomitant]
  10. MAGNESIUM OXIDE [Concomitant]
  11. MYSLEE [Concomitant]
  12. EXCEGRAN [Concomitant]
  13. TAKEPRON [Concomitant]

REACTIONS (1)
  - NEOPLASM RECURRENCE [None]
